FAERS Safety Report 9017965 (Version 1)
Quarter: 2013Q1

REPORT INFORMATION
  Report Type: Spontaneous
  Country: US (occurrence: US)
  Receive Date: 20130118
  Receipt Date: 20130118
  Transmission Date: 20140127
  Serious: No
  Sender: FDA-Public Use
  Company Number: US-BIOGENIDEC-2013BI004108

PATIENT
  Age: 34 Year
  Sex: Female

DRUGS (1)
  1. AVONEX [Suspect]
     Indication: MULTIPLE SCLEROSIS
     Route: 030
     Dates: start: 2002, end: 2002

REACTIONS (6)
  - Loss of control of legs [Recovered/Resolved]
  - Musculoskeletal disorder [Unknown]
  - Secondary progressive multiple sclerosis [Unknown]
  - Drug intolerance [Unknown]
  - Influenza like illness [Recovered/Resolved]
  - Asthenia [Recovered/Resolved]
